FAERS Safety Report 22630785 (Version 4)
Quarter: 2023Q4

REPORT INFORMATION
  Report Type: Spontaneous
  Country: US (occurrence: US)
  Receive Date: 20230622
  Receipt Date: 20231025
  Transmission Date: 20240110
  Serious: No
  Sender: FDA-Public Use
  Company Number: US-PFIZER INC-PV202200132400

PATIENT
  Age: 76 Year
  Sex: Female
  Weight: 67.13 kg

DRUGS (7)
  1. IBRANCE [Suspect]
     Active Substance: PALBOCICLIB
     Indication: Breast cancer stage IV
     Dosage: 100 MG, CYCLIC (ONCE A DAY FOR 21 DAYS, THEN OFF 7 DAYS)
     Route: 048
     Dates: start: 20221227
  2. IBRANCE [Suspect]
     Active Substance: PALBOCICLIB
     Dosage: 100 MG, DAILY
     Dates: start: 20230105
  3. IBRANCE [Suspect]
     Active Substance: PALBOCICLIB
     Dosage: 100 MG, CYCLIC (100MG DAILY FOR 3 WEEKS, THEN OFF, 7 DAYS)
     Dates: start: 202212, end: 20231011
  4. ANASTROZOLE [Concomitant]
     Active Substance: ANASTROZOLE
     Indication: Antioestrogen therapy
     Dosage: 1 MG, 1X/DAY
     Route: 048
     Dates: start: 20230101
  5. ANASTROZOLE [Concomitant]
     Active Substance: ANASTROZOLE
     Indication: Breast cancer
     Dosage: 10 MG, DAILY (PATIENT BELIEVES IT WAS 10MG TABLETS EVERY DAY)
     Dates: start: 202212, end: 20231011
  6. CALCIUM [Concomitant]
     Active Substance: CALCIUM
     Indication: Supplementation therapy
     Dosage: 600 MG, 1X/DAY
     Route: 048
     Dates: start: 20230305
  7. LISINOPRIL [Concomitant]
     Active Substance: LISINOPRIL
     Indication: Hypertension
     Dosage: 12.5 MG, 2X/DAY
     Route: 048
     Dates: start: 1995

REACTIONS (7)
  - Tooth loss [Unknown]
  - Feeding disorder [Unknown]
  - Weight increased [Unknown]
  - Weight decreased [Recovered/Resolved]
  - Decreased appetite [Recovered/Resolved]
  - Neoplasm recurrence [Unknown]
  - Hunger [Unknown]

NARRATIVE: CASE EVENT DATE: 20230105
